FAERS Safety Report 6868642-1 (Version None)
Quarter: 2010Q3

REPORT INFORMATION
  Report Type: 
  Country: None (occurrence: None)
  Receive Date: 20100722
  Receipt Date: 20080718
  Transmission Date: 20110219
  Serious: No
  Sender: FDA-Public Use
  Company Number: US-PFIZER INC-2008047428

PATIENT
  Sex: Male
  Weight: 68.04 kg

DRUGS (1)
  1. CHANTIX [Suspect]
     Indication: SMOKING CESSATION THERAPY
     Route: 048
     Dates: start: 20080601

REACTIONS (4)
  - AGEUSIA [None]
  - ANOSMIA [None]
  - FEELING ABNORMAL [None]
  - SINUSITIS [None]
